FAERS Safety Report 5481130-2 (Version None)
Quarter: 2007Q4

REPORT INFORMATION
  Report Type: 
  Country: None (occurrence: None)
  Receive Date: 20071004
  Receipt Date: 20070921
  Transmission Date: 20080405
  Serious: Yes (Hospitalization)
  Sender: FDA-Public Use
  Company Number: 237760K07USA

PATIENT
  Age: 45 Year
  Sex: Female

DRUGS (3)
  1. REBIF [Suspect]
     Indication: MULTIPLE SCLEROSIS
     Dosage: 44 MCG, 3 IN 1 WEEKS, SUBCUTANEOUS
     Route: 058
     Dates: start: 20070727
  2. OXYCONTIN [Concomitant]
  3. PROVIGIL [Concomitant]

REACTIONS (7)
  - ANOREXIA [None]
  - BURNING SENSATION [None]
  - DEPRESSION [None]
  - IMPAIRED DRIVING ABILITY [None]
  - ORAL INTAKE REDUCED [None]
  - PAIN IN EXTREMITY [None]
  - WEIGHT DECREASED [None]
